FAERS Safety Report 4981850-X (Version None)
Quarter: 2006Q2

REPORT INFORMATION
  Report Type: 
  Country: None (occurrence: None)
  Receive Date: 20060425
  Receipt Date: 20060417
  Transmission Date: 20061013
  Serious: Yes (Hospitalization)
  Sender: FDA-Public Use
  Company Number: PHEH2006US05036

PATIENT

DRUGS (1)
  1. ENABLEX [Suspect]

REACTIONS (1)
  - PSYCHOTIC DISORDER [None]
